FAERS Safety Report 9182756 (Version 1)
Quarter: 2013Q1

REPORT INFORMATION
  Report Type: Spontaneous
  Country: US (occurrence: US)
  Receive Date: 20130322
  Receipt Date: 20130322
  Transmission Date: 20140127
  Serious: Yes (Other)
  Sender: FDA-Public Use
  Company Number: US-BRISTOL-MYERS SQUIBB COMPANY-17111824

PATIENT
  Sex: Female
  Weight: 72.56 kg

DRUGS (3)
  1. ERBITUX [Suspect]
     Indication: HEAD AND NECK CANCER
     Dates: start: 20120924
  2. BENADRYL [Concomitant]
     Indication: PREMEDICATION
  3. SOLU-CORTEF [Concomitant]
     Indication: PREMEDICATION

REACTIONS (4)
  - Dyspnoea [Unknown]
  - Chest discomfort [Unknown]
  - Eyelid oedema [Unknown]
  - Lip swelling [Unknown]
